FAERS Safety Report 5242988-5 (Version None)
Quarter: 2007Q1

REPORT INFORMATION
  Report Type: 
  Country: None (occurrence: None)
  Receive Date: 20070215
  Receipt Date: 20070208
  Transmission Date: 20070707
  Serious: Yes (Hospitalization, Disabling)
  Sender: FDA-Public Use
  Company Number: 2006SP008814

PATIENT
  Age: 29 Year
  Sex: Female
  Weight: 45.3597 kg

DRUGS (5)
  1. PEG-INTRON [Suspect]
     Indication: HEPATITIS C
     Dosage: 80 MCG; ; SC
     Route: 058
     Dates: start: 20060301
  2. RIBAVIRIN [Suspect]
     Indication: HEPATITIS C
     Dosage: 800 MG; ; PO
     Route: 048
     Dates: start: 20060301
  3. CLONAZEPAM [Concomitant]
  4. PREMARIN [Concomitant]
  5. REMERON [Concomitant]

REACTIONS (15)
  - ANAEMIA [None]
  - ANOREXIA [None]
  - ASTHENIA [None]
  - BLADDER OBSTRUCTION [None]
  - BLOOD POTASSIUM DECREASED [None]
  - DEHYDRATION [None]
  - ELECTROLYTE IMBALANCE [None]
  - GASTRITIS [None]
  - HEAT STROKE [None]
  - HYPERTHYROIDISM [None]
  - HYPOTHYROIDISM [None]
  - LOSS OF CONSCIOUSNESS [None]
  - NEUTROPHIL COUNT DECREASED [None]
  - SYNCOPE [None]
  - WEIGHT FLUCTUATION [None]
